FAERS Safety Report 7881890-7 (Version None)
Quarter: 2011Q4

REPORT INFORMATION
  Report Type: 
  Country: None (occurrence: None)
  Receive Date: 20111101
  Receipt Date: 20110602
  Transmission Date: 20120403
  Serious: No
  Sender: FDA-Public Use
  Company Number: US-AMGEN-USASP2010012860

PATIENT
  Age: 64 Year
  Sex: Female

DRUGS (1)
  1. ENBREL [Suspect]
     Indication: RHEUMATOID ARTHRITIS
     Dosage: 50 MG, QWK
     Dates: start: 20080508

REACTIONS (6)
  - RESPIRATORY TRACT CONGESTION [None]
  - SINUSITIS [None]
  - COUGH [None]
  - PYREXIA [None]
  - SINUS CONGESTION [None]
  - OEDEMA PERIPHERAL [None]
